FAERS Safety Report 11776258 (Version 1)
Quarter: 2015Q4

REPORT INFORMATION
  Report Type: Report from Study
  Country: GB (occurrence: GB)
  Receive Date: 20151125
  Receipt Date: 20151125
  Transmission Date: 20160304
  Serious: Yes (Other)
  Sender: FDA-Public Use
  Company Number: PHFR2015GB008893

PATIENT
  Age: 39 Year
  Sex: Female

DRUGS (1)
  1. GILENYA [Suspect]
     Active Substance: FINGOLIMOD HYDROCHLORIDE
     Indication: MULTIPLE SCLEROSIS
     Dosage: 0.5 MG, UNK
     Route: 065
     Dates: start: 20140723

REACTIONS (26)
  - Carotid artery occlusion [Unknown]
  - Eye pain [Unknown]
  - Visual impairment [Unknown]
  - Multiple sclerosis relapse [Unknown]
  - Ataxia [Unknown]
  - Lymphocyte count decreased [Unknown]
  - Nasopharyngitis [Unknown]
  - Sensory disturbance [Unknown]
  - Optic atrophy [Unknown]
  - Nystagmus [Recovered/Resolved]
  - Infection [Unknown]
  - Photopsia [Unknown]
  - Cerebral hyperperfusion syndrome [Unknown]
  - Tremor [Unknown]
  - Saccadic eye movement [Unknown]
  - Throat tightness [Unknown]
  - Ophthalmoplegia [Unknown]
  - Glossodynia [Unknown]
  - Blood pressure increased [Unknown]
  - Cough [Unknown]
  - Diplopia [Unknown]
  - Micturition urgency [Unknown]
  - Extensor plantar response [Unknown]
  - Fatigue [Unknown]
  - Reflexes abnormal [Unknown]
  - Vertigo [Unknown]

NARRATIVE: CASE EVENT DATE: 20150318
